FAERS Safety Report 4751722-4 (Version None)
Quarter: 2005Q3

REPORT INFORMATION
  Report Type: 
  Country: None (occurrence: None)
  Receive Date: 20050822
  Receipt Date: 20050809
  Transmission Date: 20060218
  Serious: Yes (Hospitalization, Other)
  Sender: FDA-Public Use
  Company Number: BR-2005-016058

PATIENT
  Age: 47 Year
  Sex: Male

DRUGS (1)
  1. BETAFERON 250 UG, 500 UG AND COPAXONE(CODE NOT BROKEN) INJECTION, 500U [Suspect]
     Indication: RELAPSING-REMITTING MULTIPLE SCLEROSIS
     Dosage: EVERY 2D, SUBCUTANEOUS
     Route: 058
     Dates: start: 20050621, end: 20050808

REACTIONS (4)
  - AZOTAEMIA [None]
  - INFECTION [None]
  - PROGRESSIVE MULTIPLE SCLEROSIS [None]
  - URINE OUTPUT DECREASED [None]
